FAERS Safety Report 9027114 (Version 2)
Quarter: 2013Q4

REPORT INFORMATION
  Report Type: Spontaneous
  Country: US (occurrence: US)
  Receive Date: 20130123
  Receipt Date: 20131216
  Transmission Date: 20140711
  Serious: Yes (Other)
  Sender: FDA-Public Use
  Company Number: US-PFIZER INC-2013027837

PATIENT
  Age: 60 Year
  Sex: Female
  Weight: 68.03 kg

DRUGS (10)
  1. LYRICA [Suspect]
     Indication: FIBROMYALGIA
     Dosage: 50 MG, DAILY
     Route: 048
     Dates: start: 20130118
  2. LYRICA [Suspect]
     Indication: MIGRAINE
     Dosage: UNK
  3. LYRICA [Suspect]
     Dosage: 600 MG, 1X/DAY
  4. METAXALONE [Suspect]
     Indication: CHRONIC PAROXYSMAL HEMICRANIA
     Dosage: 800 MG EVERY 6-8 HOURS, AS NEEDED
  5. ONDANSETRON [Suspect]
     Indication: PAIN
     Dosage: 8 MG, UNK
  6. SUMATRIPTAN SUCCINATE [Suspect]
     Indication: PAIN
     Dosage: 100 MG, AS NEEDED
  7. BACLOFEN [Suspect]
     Indication: CHRONIC PAROXYSMAL HEMICRANIA
     Dosage: 10 MG EVERY 6-8 HOURS, AS NEEDED
  8. INDOMETHACIN [Suspect]
     Indication: CHRONIC PAROXYSMAL HEMICRANIA
     Dosage: 25 MG, 4X/DAY
     Dates: end: 20130117
  9. PAROXETINE [Concomitant]
     Dosage: 10 MG, DAILY
  10. LUNESTA [Concomitant]
     Indication: SLEEP DISORDER
     Dosage: 3 MG, DAILY

REACTIONS (13)
  - Off label use [Unknown]
  - Allodynia [Unknown]
  - Post concussion syndrome [Unknown]
  - Hypertension [Unknown]
  - Occipital neuralgia [Unknown]
  - Glossopharyngeal neuralgia [Unknown]
  - Drug ineffective for unapproved indication [Unknown]
  - Somnolence [Unknown]
  - Dizziness [Unknown]
  - Fatigue [Unknown]
  - Medication overuse headache [Unknown]
  - Upper-airway cough syndrome [Unknown]
  - Therapeutic response unexpected [Unknown]
